FAERS Safety Report 4479671-X (Version None)
Quarter: 2004Q4

REPORT INFORMATION
  Report Type: 
  Country: None (occurrence: None)
  Receive Date: 20041020
  Receipt Date: 20041002
  Transmission Date: 20050328
  Serious: Yes (Other)
  Sender: FDA-Public Use
  Company Number: US-GLAXOSMITHKLINE-A0529614A

PATIENT
  Age: 65 Year
  Sex: Male

DRUGS (2)
  1. LAMICTAL [Suspect]
     Indication: CONVULSION
     Route: 048
     Dates: start: 20040701, end: 20040916
  2. ROLAIDS [Suspect]
     Indication: FLATULENCE
     Dosage: 2TAB TWELVE TIMES PER DAY
     Route: 048
     Dates: start: 20040914, end: 20040916

REACTIONS (6)
  - ABDOMINAL DISTENSION [None]
  - CONVULSION [None]
  - FEELING ABNORMAL [None]
  - FLATULENCE [None]
  - HYPERHIDROSIS [None]
  - PALLOR [None]
